FAERS Safety Report 12926748 (Version 1)
Quarter: 2016Q4

REPORT INFORMATION
  Report Type: Spontaneous
  Country: US (occurrence: US)
  Receive Date: 20161109
  Receipt Date: 20161109
  Transmission Date: 20170207
  Serious: No
  Sender: FDA-Public Use
  Company Number: US-B.I. PHARMACEUTICALS,INC./RIDGEFIELD-2016-BI-070553

PATIENT
  Age: 62 Year
  Sex: Male

DRUGS (4)
  1. ZANTAC MAXIMUM STRENGTH 150 COOL MINT [Suspect]
     Active Substance: RANITIDINE HYDROCHLORIDE
     Dosage: ONE TABLET TWICE A DAY;  FORM STRENGTH: 150MG; FORMULATION: CAPLET? ADMINISTRATION CORRECT? YES ?ACT
     Route: 048
     Dates: start: 20160926, end: 20161016
  2. METFORMIN [Concomitant]
     Active Substance: METFORMIN HYDROCHLORIDE
     Indication: DIABETES MELLITUS
     Dosage: ONE CAPLET TWICE A DAY;  FORM STRENGTH: 500MG; FORMULATION: CAPLET
     Route: 048
     Dates: start: 2013
  3. ZANTAC MAXIMUM STRENGTH 150 COOL MINT [Suspect]
     Active Substance: RANITIDINE HYDROCHLORIDE
     Indication: DYSPEPSIA
     Dosage: 150MG  TWICE A DAY;  FORM STRENGTH: 150MG; FORMULATION: CAPLET? ADMINISTRATION CORRECT? YES ?ACTION(
     Route: 048
     Dates: start: 20161016
  4. BABY ASPIRIN [Concomitant]
     Active Substance: ASPIRIN
     Indication: CARDIOVASCULAR EVENT PROPHYLAXIS
     Dosage: ONE CAPLET DAILY;  FORM STRENGTH: 81MG; FORMULATION: CAPLET
     Route: 048

REACTIONS (2)
  - Off label use [Unknown]
  - Chest pain [Unknown]

NARRATIVE: CASE EVENT DATE: 20160926
